FAERS Safety Report 5704920-7 (Version None)
Quarter: 2008Q2

REPORT INFORMATION
  Report Type: 
  Country: None (occurrence: None)
  Receive Date: 20080414
  Receipt Date: 20080318
  Transmission Date: 20081010
  Serious: No
  Sender: FDA-Public Use
  Company Number: US-BOEHRINGER INGELHEIM GMBH, GERMANY-2008-BP-03269BP

PATIENT
  Sex: Female

DRUGS (10)
  1. SPIRIVA [Suspect]
     Indication: ASTHMA
     Route: 055
     Dates: start: 20080204, end: 20080228
  2. ADVAIR HFA [Concomitant]
     Indication: ASTHMA
  3. SINGULAIR [Concomitant]
     Indication: ASTHMA
  4. ZYRTEC [Concomitant]
  5. ALBUTEROL [Concomitant]
  6. PINDOLOL [Concomitant]
  7. AMLODIPINE BESYLATE [Concomitant]
  8. HYDROCHLOROTHIAZIDE [Concomitant]
  9. DICLOFENAC SODIUM [Concomitant]
  10. RANITIDINE [Concomitant]

REACTIONS (2)
  - DYSPNOEA [None]
  - PHARYNGEAL OEDEMA [None]
